FAERS Safety Report 20358484 (Version 1)
Quarter: 2022Q1

REPORT INFORMATION
  Report Type: Spontaneous
  Country: US (occurrence: US)
  Receive Date: 20220120
  Receipt Date: 20220120
  Transmission Date: 20220424
  Serious: No
  Sender: FDA-Public Use
  Company Number: US-NOVOPROD-881304

PATIENT
  Sex: Male

DRUGS (1)
  1. OZEMPIC [Suspect]
     Active Substance: SEMAGLUTIDE
     Indication: Product used for unknown indication
     Dosage: 0.25 MG
     Route: 058
     Dates: start: 20211121

REACTIONS (5)
  - Ocular discomfort [Unknown]
  - Blood glucose increased [Not Recovered/Not Resolved]
  - Product communication issue [Unknown]
  - Product label confusion [Unknown]
  - Device malfunction [Unknown]
